FAERS Safety Report 6164262-5 (Version None)
Quarter: 2009Q2

REPORT INFORMATION
  Report Type: 
  Country: None (occurrence: None)
  Receive Date: 20090422
  Receipt Date: 20090414
  Transmission Date: 20091009
  Serious: Yes (Hospitalization)
  Sender: FDA-Public Use
  Company Number: FR-BAXTER-2009BH004796

PATIENT
  Age: 28 Year
  Sex: Male

DRUGS (6)
  1. UROMITEXAN BAXTER [Suspect]
     Indication: CHEMOTHERAPY
     Route: 065
     Dates: start: 20000101
  2. HOLOXAN BAXTER [Suspect]
     Indication: BONE SARCOMA
     Dosage: DOSE UNIT:GRAMS PER METERS SQUARED
     Route: 042
     Dates: start: 20000101, end: 20010201
  3. CISPLATIN [Suspect]
     Indication: BONE SARCOMA
     Route: 042
     Dates: start: 20000101, end: 20010201
  4. ADRIAMYCIN RDF [Suspect]
     Indication: BONE SARCOMA
     Route: 042
     Dates: start: 20000101, end: 20010201
  5. IODINE [Suspect]
     Indication: COMPUTERISED TOMOGRAM
  6. GADOLINIUM [Suspect]
     Indication: NUCLEAR MAGNETIC RESONANCE IMAGING

REACTIONS (3)
  - BLOOD CREATININE INCREASED [None]
  - FATIGUE [None]
  - RENAL FAILURE [None]
